FAERS Safety Report 7428729-1 (Version None)
Quarter: 2011Q2

REPORT INFORMATION
  Report Type: 
  Country: None (occurrence: None)
  Receive Date: 20110413
  Receipt Date: 20110328
  Transmission Date: 20111010
  Serious: Yes (Life-Threatening, Hospitalization, Other)
  Sender: FDA-Public Use
  Company Number: 2011040035

PATIENT
  Age: 50 Year
  Sex: Male

DRUGS (2)
  1. METHYLPREDNISOLONE (METHYLPRDNISOLONE) [Suspect]
     Indication: COLITIS ULCERATIVE
     Dosage: 60 MG, DAILY
  2. MESALAMINE [Suspect]
     Indication: COLITIS ULCERATIVE
     Dosage: 4 GM, DAILY

REACTIONS (3)
  - ACUTE MYOCARDIAL INFARCTION [None]
  - CORONARY ARTERY EMBOLISM [None]
  - CARDIAC ARREST [None]
